FAERS Safety Report 13039541 (Version 1)
Quarter: 2016Q4

REPORT INFORMATION
  Report Type: Spontaneous
  Country: HR (occurrence: HR)
  Receive Date: 20161219
  Receipt Date: 20161219
  Transmission Date: 20170207
  Serious: Yes (Hospitalization, Other)
  Sender: FDA-Public Use
  Company Number: HR-ABBVIE-16P-216-1814028-00

PATIENT
  Age: 34 Year
  Sex: Male

DRUGS (1)
  1. DEPAKINE CHRONO [Suspect]
     Active Substance: VALPROATE SODIUM
     Indication: DRUG DEPENDENCE
     Route: 048
     Dates: start: 20161116, end: 20161123

REACTIONS (8)
  - Hypersensitivity [Recovered/Resolved]
  - Asphyxia [Recovered/Resolved]
  - Eye swelling [Recovered/Resolved]
  - Lip swelling [Recovered/Resolved]
  - Face oedema [Recovered/Resolved]
  - Pruritus generalised [Recovered/Resolved]
  - Eyelid oedema [Recovered/Resolved]
  - Erythema [Recovered/Resolved]

NARRATIVE: CASE EVENT DATE: 20161123
